FAERS Safety Report 6688144-5 (Version None)
Quarter: 2010Q2

REPORT INFORMATION
  Report Type: 
  Country: None (occurrence: None)
  Receive Date: 20100420
  Receipt Date: 20100408
  Transmission Date: 20101027
  Serious: Yes (Hospitalization)
  Sender: FDA-Public Use
  Company Number: KR-PFIZER INC-2010032504

PATIENT
  Age: 56 Year
  Sex: Male

DRUGS (8)
  1. SUNITINIB MALATE [Suspect]
     Indication: HEPATIC NEOPLASM MALIGNANT NON-RESECTABLE
     Dosage: 37.5 MG, 1X/DAY
     Route: 048
     Dates: start: 20100225, end: 20100307
  2. NOVOMIX [Concomitant]
     Dosage: UNK
     Dates: start: 20100225, end: 20100225
  3. PROPRANOLOL [Concomitant]
     Dosage: UNK
     Dates: start: 20091216
  4. LACTULOSE [Concomitant]
     Dosage: UNK
     Dates: start: 20090217
  5. ISOLEUCINE/LEUCINE/VALINE [Concomitant]
     Dosage: UNK
     Dates: start: 20100211
  6. GARLIC [Concomitant]
     Dosage: UNK
     Dates: start: 20091216
  7. SPIRONOLACTONE [Concomitant]
     Dosage: UNK
     Dates: start: 20091222
  8. CIPROFLOXACIN [Concomitant]
     Dosage: UNK
     Dates: start: 20091216

REACTIONS (1)
  - HEPATIC ENCEPHALOPATHY [None]
